FAERS Safety Report 8042791-7 (Version None)
Quarter: 2012Q1

REPORT INFORMATION
  Report Type: 
  Country: None (occurrence: None)
  Receive Date: 20120112
  Receipt Date: 20120110
  Transmission Date: 20120608
  Serious: Yes (Other)
  Sender: FDA-Public Use
  Company Number: US-ROCHE-784192

PATIENT
  Sex: Female
  Weight: 50.848 kg

DRUGS (1)
  1. ACCUTANE [Suspect]
     Indication: ACNE CYSTIC
     Route: 065

REACTIONS (7)
  - COLITIS ULCERATIVE [None]
  - HAEMORRHOIDS [None]
  - STRESS [None]
  - INFLAMMATORY BOWEL DISEASE [None]
  - ARTHRITIS [None]
  - IRRITABLE BOWEL SYNDROME [None]
  - CROHN'S DISEASE [None]
